FAERS Safety Report 5371866-6 (Version None)
Quarter: 2007Q2

REPORT INFORMATION
  Report Type: 
  Country: None (occurrence: None)
  Receive Date: 20070619
  Receipt Date: 20070323
  Transmission Date: 20071010
  Serious: No
  Sender: FDA-Public Use
  Company Number: 2007US000771

PATIENT
  Age: 57 Year
  Sex: Female

DRUGS (5)
  1. VESICARE [Suspect]
     Indication: HYPERTONIC BLADDER
     Dosage: 5 MG
  2. GRAPEFRUIT JUICE (CITRUS X PARADISI FRUIT JUICE) [Concomitant]
  3. LIPITOR [Concomitant]
  4. MULTIVITAMIN [Concomitant]
  5. EVISTA [Concomitant]

REACTIONS (1)
  - INCONTINENCE [None]
